FAERS Safety Report 17893309 (Version 2)
Quarter: 2020Q3

REPORT INFORMATION
  Report Type: Report from Study
  Country: None (occurrence: US)
  Receive Date: 20200614
  Receipt Date: 20200818
  Transmission Date: 20201103
  Serious: Yes (Life-Threatening, Hospitalization, Other)
  Sender: FDA-Public Use
  Company Number: US-ABBVIE-20K-163-3442988-00

PATIENT
  Age: 66 Year
  Sex: Male
  Weight: 84.9 kg

DRUGS (1)
  1. SKYRIZI [Suspect]
     Active Substance: RISANKIZUMAB-RZAA
     Indication: PSORIASIS
     Dosage: WEEK 4, THEN EVERY 12 WEEKS
     Route: 058
     Dates: start: 2019, end: 2020

REACTIONS (7)
  - Fall [Recovered/Resolved]
  - Colon cancer stage IV [Not Recovered/Not Resolved]
  - Pneumonia [Recovering/Resolving]
  - Neoplasm malignant [Unknown]
  - Asthenia [Recovering/Resolving]
  - Biliary obstruction [Recovering/Resolving]
  - Mobility decreased [Recovering/Resolving]

NARRATIVE: CASE EVENT DATE: 202004
